FAERS Safety Report 19948415 (Version 1)
Quarter: 2021Q4

REPORT INFORMATION
  Report Type: Spontaneous
  Country: PT (occurrence: PT)
  Receive Date: 20211012
  Receipt Date: 20211012
  Transmission Date: 20220303
  Serious: Yes (Other)
  Sender: FDA-Public Use
  Company Number: PT-FRESENIUS KABI-FK202110986

PATIENT
  Age: 32 Year
  Sex: Female

DRUGS (1)
  1. SUCCINYLCHOLINE CHLORIDE [Suspect]
     Active Substance: SUCCINYLCHOLINE CHLORIDE
     Indication: Product used for unknown indication
     Route: 065

REACTIONS (6)
  - Malaise [Recovered/Resolved]
  - Aphasia [Recovered/Resolved]
  - Loss of consciousness [Recovered/Resolved]
  - Wrong product administered [Recovered/Resolved]
  - Muscle twitching [Recovered/Resolved]
  - Oxygen saturation decreased [Recovered/Resolved]
